FAERS Safety Report 4877369-7 (Version None)
Quarter: 2006Q1

REPORT INFORMATION
  Report Type: 
  Country: None (occurrence: None)
  Receive Date: 20060111
  Receipt Date: 20041203
  Transmission Date: 20060701
  Serious: Yes (Hospitalization)
  Sender: FDA-Public Use
  Company Number: UA-BOEHRINGER INGELHEIM PHARMACEUTICALS, INC.-2004-AP-00409AP

PATIENT
  Sex: Male
  Weight: 80 kg

DRUGS (6)
  1. MICARDIS [Suspect]
     Indication: HYPERTENSION
     Route: 048
  2. MICARDIS [Suspect]
     Indication: DIABETIC NEPHROPATHY
  3. AMARIL [Concomitant]
     Indication: DIABETES MELLITUS
     Route: 048
     Dates: end: 20050112
  4. STAMLO [Concomitant]
     Indication: HYPERTENSION
     Route: 048
     Dates: start: 20050105
  5. FIZIOTENS [Concomitant]
     Indication: HYPERTENSION
     Route: 048
     Dates: start: 20041228, end: 20050121
  6. ACTRAPID [Concomitant]
     Indication: DIABETES MELLITUS
     Dosage: 18 - 22 U
     Route: 058
     Dates: start: 20050112

REACTIONS (5)
  - ATRIAL FIBRILLATION [None]
  - AZOTAEMIA [None]
  - CARDIAC FAILURE [None]
  - OSTEOMYELITIS CHRONIC [None]
  - PERICARDITIS [None]
